FAERS Safety Report 4417664-9 (Version None)
Quarter: 2004Q2

REPORT INFORMATION
  Report Type: 
  Country: None (occurrence: None)
  Receive Date: 20040629
  Receipt Date: 20040203
  Transmission Date: 20050107
  Serious: Yes (Hospitalization, Other)
  Sender: FDA-Public Use
  Company Number: USA040258360

PATIENT
  Age: 63 Year
  Sex: Male
  Weight: 98 kg

DRUGS (1)
  1. HUMALOG [Suspect]
     Dosage: 70 U/DAY
     Dates: start: 19990101

REACTIONS (9)
  - CARDIAC MURMUR [None]
  - CARDIOMEGALY [None]
  - CEREBROVASCULAR ACCIDENT [None]
  - CHOLELITHIASIS [None]
  - FEELING ABNORMAL [None]
  - MASS [None]
  - NEPHROLITHIASIS [None]
  - PHARYNGITIS [None]
  - WEIGHT DECREASED [None]
